FAERS Safety Report 7265034-0 (Version None)
Quarter: 2011Q1

REPORT INFORMATION
  Report Type: 
  Country: None (occurrence: None)
  Receive Date: 20110131
  Receipt Date: 20110120
  Transmission Date: 20110831
  Serious: Yes (Other)
  Sender: FDA-Public Use
  Company Number: FR-ASTELLAS-2011EU000336

PATIENT
  Age: 5 Year
  Sex: Male

DRUGS (1)
  1. PROTOPIC [Suspect]
     Dosage: UNK
     Route: 065

REACTIONS (1)
  - NEPHROBLASTOMA [None]
